FAERS Safety Report 24601870 (Version 1)
Quarter: 2024Q4

REPORT INFORMATION
  Report Type: Spontaneous
  Country: ES (occurrence: ES)
  Receive Date: 20241111
  Receipt Date: 20241111
  Transmission Date: 20250115
  Serious: Yes (Life-Threatening, Other)
  Sender: AUROBINDO
  Company Number: ES-ABBVIE-5974728

PATIENT
  Sex: Female

DRUGS (2)
  1. AZACITIDINE [Suspect]
     Active Substance: AZACITIDINE
     Indication: Acute myeloid leukaemia
     Dosage: UNK
     Route: 065
     Dates: start: 202401, end: 202406
  2. VENETOCLAX [Suspect]
     Active Substance: VENETOCLAX
     Indication: Acute myeloid leukaemia
     Dosage: UNK
     Route: 048
     Dates: start: 202401, end: 202406

REACTIONS (2)
  - Neutropenia [Unknown]
  - Poisoning [Unknown]

NARRATIVE: CASE EVENT DATE: 20240101
